FAERS Safety Report 9610496 (Version 1)
Quarter: 2013Q4

REPORT INFORMATION
  Report Type: Spontaneous
  Country: US (occurrence: US)
  Receive Date: 20131009
  Receipt Date: 20131009
  Transmission Date: 20140711
  Serious: Yes (Other)
  Sender: FDA-Public Use
  Company Number: US-PFIZER INC-2013284262

PATIENT
  Sex: Female

DRUGS (1)
  1. XELJANZ [Suspect]
     Dosage: UNK

REACTIONS (4)
  - Gastritis herpes [Unknown]
  - Herpes oesophagitis [Unknown]
  - Cytomegalovirus gastritis [Unknown]
  - Cytomegalovirus oesophagitis [Unknown]
